FAERS Safety Report 12783363 (Version 2)
Quarter: 2017Q1

REPORT INFORMATION
  Report Type: Spontaneous
  Country: US (occurrence: US)
  Receive Date: 20160927
  Receipt Date: 20170227
  Transmission Date: 20170428
  Serious: No
  Sender: FDA-Public Use
  Company Number: US-ACTELION-A-US2016-142527

PATIENT
  Age: 67 Year
  Sex: Female

DRUGS (1)
  1. OPSUMIT [Suspect]
     Active Substance: MACITENTAN
     Indication: PULMONARY ARTERIAL HYPERTENSION
     Dosage: 10 MG, QD
     Route: 048
     Dates: start: 20160817, end: 20161213

REACTIONS (4)
  - Blood pressure fluctuation [Not Recovered/Not Resolved]
  - Nasal congestion [Unknown]
  - Hypotension [Not Recovered/Not Resolved]
  - Unevaluable event [Unknown]
